FAERS Safety Report 9013383 (Version 1)
Quarter: 2013Q1

REPORT INFORMATION
  Report Type: Spontaneous
  Country: US (occurrence: US)
  Receive Date: 20130114
  Receipt Date: 20130114
  Transmission Date: 20140127
  Serious: No
  Sender: FDA-Public Use
  Company Number: US-TEVA-376481USA

PATIENT
  Sex: Male

DRUGS (2)
  1. CROMOGLICIC ACID [Suspect]
     Indication: ASTHMA
     Dosage: 2-3 TIMES A DAY; STARTED 2 WEEKS AGO
     Dates: start: 201212
  2. SALBUTAMOL [Concomitant]
     Indication: ASTHMA
     Dosage: OCCASIONAL

REACTIONS (3)
  - Blood pressure increased [Unknown]
  - Headache [Unknown]
  - Chest discomfort [Unknown]
